FAERS Safety Report 11910884 (Version 1)
Quarter: 2016Q1

REPORT INFORMATION
  Report Type: Spontaneous
  Country: US (occurrence: None)
  Receive Date: 20160111
  Receipt Date: 20160111
  Transmission Date: 20160526
  Serious: No
  Sender: FDA-Public Use
  Company Number: None

PATIENT
  Age: 67 Year
  Sex: Female
  Weight: 85.28 kg

DRUGS (14)
  1. VICODIN [Concomitant]
     Active Substance: ACETAMINOPHEN\HYDROCODONE BITARTRATE
  2. KCL [Concomitant]
     Active Substance: POTASSIUM CHLORIDE
  3. TOPAMAX [Concomitant]
     Active Substance: TOPIRAMATE
  4. IBUPROFEN. [Concomitant]
     Active Substance: IBUPROFEN
  5. CHROMIUM PICOLINATE [Concomitant]
     Active Substance: CHROMIUM PICOLINATE
  6. VALERIAN [Concomitant]
     Active Substance: VALERIAN
  7. KAVA KAVA [Concomitant]
     Active Substance: PIPER METHYSTICUM ROOT
  8. DAMN INHALER [Concomitant]
  9. CARVEDILOL. [Concomitant]
     Active Substance: CARVEDILOL
  10. LISINOPRIL. [Concomitant]
     Active Substance: LISINOPRIL
  11. FUROSEMIDE. [Concomitant]
     Active Substance: FUROSEMIDE
  12. METFORMIN [Concomitant]
     Active Substance: METFORMIN HYDROCHLORIDE
  13. PROAIR RESPICLICK [Suspect]
     Active Substance: ALBUTEROL SULFATE
     Indication: ASTHMA
     Dosage: 1 INHALATION
     Route: 055
     Dates: start: 20151101
  14. MVT [Concomitant]

REACTIONS (4)
  - Drug effect decreased [None]
  - Device issue [None]
  - Drug effect delayed [None]
  - Device difficult to use [None]
